FAERS Safety Report 7538117-5 (Version None)
Quarter: 2011Q2

REPORT INFORMATION
  Report Type: 
  Country: None (occurrence: None)
  Receive Date: 20110609
  Receipt Date: 20110601
  Transmission Date: 20111010
  Serious: Yes (Other)
  Sender: FDA-Public Use
  Company Number: DE-AMGEN-DEUSP2011028066

PATIENT
  Sex: Female

DRUGS (1)
  1. PROLIA [Suspect]
     Indication: PRODUCT USED FOR UNKNOWN INDICATION
     Dosage: UNK
     Dates: start: 20110519

REACTIONS (5)
  - HEADACHE [None]
  - DISCOMFORT [None]
  - VISUAL IMPAIRMENT [None]
  - SKIN DISORDER [None]
  - BURNING SENSATION [None]
